FAERS Safety Report 23082395 (Version 2)
Quarter: 2023Q4

REPORT INFORMATION
  Report Type: Spontaneous
  Country: US (occurrence: US)
  Receive Date: 20231019
  Receipt Date: 20231123
  Transmission Date: 20240110
  Serious: Yes (Hospitalization, Other)
  Sender: FDA-Public Use
  Company Number: US-LEO Pharma-364080

PATIENT
  Age: 40 Year
  Sex: Male

DRUGS (7)
  1. ADBRY [Suspect]
     Active Substance: TRALOKINUMAB-LDRM
     Indication: Dermatitis atopic
     Route: 058
     Dates: start: 202205, end: 202212
  2. IBUPROFEN [Concomitant]
     Active Substance: IBUPROFEN
     Indication: Product used for unknown indication
  3. Amoxicillin-Clavulanat [Concomitant]
     Indication: Product used for unknown indication
  4. TACROLIMUS [Concomitant]
     Active Substance: TACROLIMUS
     Indication: Product used for unknown indication
  5. PRILOSEC [Concomitant]
     Active Substance: OMEPRAZOLE MAGNESIUM
     Indication: Product used for unknown indication
  6. PREGABALIN [Concomitant]
     Active Substance: PREGABALIN
     Indication: Product used for unknown indication
  7. AVEENO DAILY MOISTURIZ [Concomitant]
     Indication: Product used for unknown indication

REACTIONS (2)
  - Colectomy [Unknown]
  - Colitis [Unknown]

NARRATIVE: CASE EVENT DATE: 20231023
